FAERS Safety Report 8827240 (Version 1)
Quarter: 2012Q4

REPORT INFORMATION
  Report Type: 
  Country: US (occurrence: US)
  Receive Date: 20121005
  Receipt Date: 20121005
  Transmission Date: 20130627
  Serious: Yes (Other)
  Sender: FDA-Public Use
  Company Number: US-ROCHE-1136555

PATIENT
  Sex: Female

DRUGS (4)
  1. PEGASYS [Suspect]
     Indication: HEPATITIS C
     Route: 065
     Dates: start: 20110701, end: 201205
  2. RIBAVIRIN [Suspect]
     Indication: HEPATITIS C
     Route: 065
     Dates: start: 20110701, end: 201205
  3. PROCRIT [Suspect]
     Indication: PANCYTOPENIA
     Route: 065
     Dates: start: 20110819
  4. PROCRIT [Suspect]
     Route: 065
     Dates: start: 2012

REACTIONS (4)
  - Aplasia pure red cell [Unknown]
  - Pancytopenia [Unknown]
  - Haemoglobin decreased [Unknown]
  - Bone marrow failure [Unknown]
